FAERS Safety Report 7275100-1 (Version None)
Quarter: 2011Q1

REPORT INFORMATION
  Report Type: 
  Country: None (occurrence: None)
  Receive Date: 20110204
  Receipt Date: 20110124
  Transmission Date: 20110831
  Serious: Yes (Other)
  Sender: FDA-Public Use
  Company Number: PHHY2011CA02628

PATIENT
  Sex: Female

DRUGS (1)
  1. ACLASTA [Suspect]
     Indication: OSTEOPOROSIS
     Dosage: UNK
     Dates: start: 20110107

REACTIONS (5)
  - HALLUCINATION [None]
  - DISORIENTATION [None]
  - DELUSION [None]
  - ASTHENIA [None]
  - FATIGUE [None]
